FAERS Safety Report 7744076-2 (Version None)
Quarter: 2011Q3

REPORT INFORMATION
  Report Type: 
  Country: None (occurrence: None)
  Receive Date: 20110912
  Receipt Date: 20110906
  Transmission Date: 20111222
  Serious: Yes (Other)
  Sender: FDA-Public Use
  Company Number: DE-ABBOTT-11P-062-0851517-00

PATIENT
  Sex: Male
  Weight: 72 kg

DRUGS (2)
  1. TRUVADA [Concomitant]
     Indication: HIV INFECTION
     Dosage: 1 TAB DAILY
     Route: 048
     Dates: start: 20091201
  2. KALETRA [Suspect]
     Indication: HIV INFECTION
     Dosage: 800MG DAILY
     Route: 048
     Dates: start: 20091201

REACTIONS (1)
  - CHRONIC OBSTRUCTIVE PULMONARY DISEASE [None]
